FAERS Safety Report 23463854 (Version 2)
Quarter: 2024Q1

REPORT INFORMATION
  Report Type: Report from Study
  Country: CO (occurrence: CO)
  Receive Date: 20240201
  Receipt Date: 20240209
  Transmission Date: 20240409
  Serious: Yes (Hospitalization)
  Sender: FDA-Public Use
  Company Number: CO-JNJFOC-20240169520

PATIENT
  Age: 83 Year
  Sex: Male
  Weight: 56 kg

DRUGS (2)
  1. IMBRUVICA [Suspect]
     Active Substance: IBRUTINIB
     Indication: Chronic lymphocytic leukaemia
     Route: 048
     Dates: start: 20230617
  2. INSULIN NOS [Concomitant]
     Active Substance: INSULIN NOS
     Indication: Product used for unknown indication
     Route: 050

REACTIONS (3)
  - Haemoglobin decreased [Recovering/Resolving]
  - Urinary tract infection [Recovering/Resolving]
  - Blood test abnormal [Recovering/Resolving]

NARRATIVE: CASE EVENT DATE: 20240122
